FAERS Safety Report 5212187-1 (Version None)
Quarter: 2006Q4

REPORT INFORMATION
  Report Type: 
  Country: None (occurrence: None)
  Receive Date: 20061114
  Receipt Date: 20060821
  Transmission Date: 20070319
  Serious: Yes (Hospitalization)
  Sender: FDA-Public Use
  Company Number: S06-USA-03413-01

PATIENT
  Age: 84 Year
  Sex: Male

DRUGS (14)
  1. NAMENDA [Suspect]
     Indication: DEMENTIA ALZHEIMER'S TYPE
     Dosage: 10 MG BID PO
     Route: 048
     Dates: end: 20060809
  2. NAMENDA [Suspect]
     Indication: DEMENTIA ALZHEIMER'S TYPE
     Dosage: 10 MG QD PO
     Route: 048
     Dates: start: 20060810
  3. NAMENDA [Suspect]
     Indication: DEMENTIA ALZHEIMER'S TYPE
     Dosage: 5 MG QD PO
     Route: 048
     Dates: start: 20060601
  4. NAMENDA [Suspect]
     Indication: DEMENTIA ALZHEIMER'S TYPE
     Dosage: 15 MG QD PO
     Route: 048
  5. CITALOPRAM HYDROBROMIDE [Suspect]
     Dosage: 20 MG PO
     Route: 048
     Dates: start: 20051001
  6. TOPROL-XL [Concomitant]
  7. FLOMAX [Concomitant]
  8. VASOTEC [Concomitant]
  9. VYTORIN [Concomitant]
  10. AGGRENOX [Concomitant]
  11. PROSCAR [Concomitant]
  12. OMACOR (OMEGA-3 MARINE TRIGLYCERIDES) [Concomitant]
  13. DIGITEX (DIGOXIN) [Concomitant]
  14. CENTRUM [Concomitant]

REACTIONS (3)
  - CONFUSIONAL STATE [None]
  - HYPERTENSION [None]
  - TRANSIENT ISCHAEMIC ATTACK [None]
